FAERS Safety Report 6228217-4 (Version None)
Quarter: 2009Q2

REPORT INFORMATION
  Report Type: 
  Country: None (occurrence: None)
  Receive Date: 20090610
  Receipt Date: 20090610
  Transmission Date: 20091009
  Serious: Yes (Disabling, Other)
  Sender: FDA-Public Use
  Company Number: None

PATIENT
  Age: 44 Year
  Sex: Female
  Weight: 113.8529 kg

DRUGS (2)
  1. PREDNISONE [Suspect]
     Indication: LYMPHADENOPATHY
     Dosage: 20 MG 2 TIMES PER DAY PO
     Route: 048
     Dates: start: 20090403, end: 20090430
  2. PREDNISONE [Suspect]
     Dosage: 5 MG 30/20/10/5 MG 5 DA PO
     Route: 048
     Dates: start: 20090501, end: 20090525

REACTIONS (3)
  - ACNE [None]
  - DIABETES MELLITUS [None]
  - VISION BLURRED [None]
